FAERS Safety Report 13612126 (Version 1)
Quarter: 2017Q2

REPORT INFORMATION
  Report Type: Spontaneous
  Country: ES (occurrence: ES)
  Receive Date: 20170605
  Receipt Date: 20170605
  Transmission Date: 20170830
  Serious: Yes (Hospitalization, Other)
  Sender: FDA-Public Use
  Company Number: ES-NOVOPROD-547267

PATIENT
  Age: 72 Year
  Sex: Female

DRUGS (8)
  1. ADIRO [Concomitant]
     Active Substance: ASPIRIN
     Dosage: 100 MG, QD (0-1-0)
     Route: 065
     Dates: end: 20170516
  2. AMLODIPINE [Concomitant]
     Active Substance: AMLODIPINE BESYLATE
     Dosage: 5 MG, QD (1-0-0)
     Route: 065
     Dates: end: 20170516
  3. IRBESARTAN/HYDROCHLOROTHIAZIDE [Concomitant]
     Active Substance: HYDROCHLOROTHIAZIDE\IRBESARTAN
     Dosage: 150 / 12.5MG (1-0-0)
     Route: 065
     Dates: end: 20170516
  4. OMEPRAZOLE. [Concomitant]
     Active Substance: OMEPRAZOLE
     Dosage: 20 MG, QD (1-0-0)
     Route: 065
     Dates: end: 20170516
  5. GABAPENTINE [Concomitant]
     Active Substance: GABAPENTIN
     Indication: HEADACHE
     Dosage: UNK
     Route: 065
  6. TRESIBA [Suspect]
     Active Substance: INSULIN DEGLUDEC
     Indication: TYPE 1 DIABETES MELLITUS
     Dosage: 80 U, QD (MORNING)
     Route: 065
     Dates: start: 201703, end: 20170523
  7. ATORVASTATIN [Concomitant]
     Active Substance: ATORVASTATIN
     Dosage: 40 MG, QD (0-0-1)
     Route: 065
     Dates: end: 20170516
  8. NOVORAPID [Suspect]
     Active Substance: INSULIN ASPART
     Indication: TYPE 1 DIABETES MELLITUS
     Dosage: 12-14-10 + EXTRA SUPLEMENT
     Route: 065

REACTIONS (1)
  - Hepatitis toxic [Not Recovered/Not Resolved]
